FAERS Safety Report 11307602 (Version 3)
Quarter: 2015Q3

REPORT INFORMATION
  Report Type: Report from Study
  Country: BE (occurrence: BE)
  Receive Date: 20150723
  Receipt Date: 20150907
  Transmission Date: 20151125
  Serious: Yes (Hospitalization, Disabling, Other)
  Sender: FDA-Public Use
  Company Number: BE-AMGEN-BELSL2015072567

PATIENT
  Age: 62 Year
  Sex: Female
  Weight: 138 kg

DRUGS (1)
  1. NPLATE [Suspect]
     Active Substance: ROMIPLOSTIM
     Indication: IMMUNE THROMBOCYTOPENIC PURPURA
     Dosage: 500 MUG, UNK
     Route: 065

REACTIONS (5)
  - Renal impairment [Unknown]
  - Hydronephrosis [Unknown]
  - Malaise [Recovering/Resolving]
  - Diabetic nephropathy [Unknown]
  - Fluid retention [Unknown]

NARRATIVE: CASE EVENT DATE: 20150702
